FAERS Safety Report 10532207 (Version 2)
Quarter: 2014Q4

REPORT INFORMATION
  Report Type: Spontaneous
  Country: US (occurrence: US)
  Receive Date: 20141021
  Receipt Date: 20141114
  Transmission Date: 20150529
  Serious: No
  Sender: FDA-Public Use
  Company Number: US-PFIZER INC-2014287673

PATIENT
  Age: 71 Year
  Sex: Female
  Weight: 65.31 kg

DRUGS (10)
  1. COUMADIN [Concomitant]
     Active Substance: WARFARIN SODIUM
     Dosage: 2 MG, 1X/DAY
     Route: 048
  2. TRICOR [Concomitant]
     Active Substance: FENOFIBRATE
     Dosage: 145 MG, 1X/DAY
     Route: 048
  3. FLUTICASONE PROPIONATE. [Concomitant]
     Active Substance: FLUTICASONE PROPIONATE
     Dosage: 50MCG/ACT SUSPENSION 2 (TWO) SUSPENSION NASAL DAILY IN EACH NOSTRIL
     Route: 045
  4. PRAVASTATIN SODIUM. [Concomitant]
     Active Substance: PRAVASTATIN SODIUM
     Dosage: 20 MG, 1X/DAY
     Route: 048
  5. ZYRTEC [Concomitant]
     Active Substance: CETIRIZINE HYDROCHLORIDE
     Dosage: 2 TEASPOONS(10 MG) DAILY
     Route: 048
  6. TOVIAZ [Suspect]
     Active Substance: FESOTERODINE FUMARATE
     Indication: URINARY INCONTINENCE
     Dosage: 4 MG, 1X/DAY
     Route: 048
     Dates: start: 20140925
  7. AMLODIPINE BESYLATE. [Concomitant]
     Active Substance: AMLODIPINE BESYLATE
     Indication: BLOOD PRESSURE ABNORMAL
     Dosage: 2.5 MG, 1X/DAY
     Route: 048
  8. BENAZEPRIL [Concomitant]
     Active Substance: BENAZEPRIL\BENAZEPRIL HYDROCHLORIDE
     Indication: BLOOD PRESSURE ABNORMAL
     Dosage: 10 MG, 1X/DAY
     Route: 048
  9. PRILOSEC [Concomitant]
     Active Substance: OMEPRAZOLE MAGNESIUM
     Dosage: 20 MG, 1X/DAY
     Route: 048
  10. XANAX [Concomitant]
     Active Substance: ALPRAZOLAM
     Dosage: 0.5 MG, 3X/DAY AS NEEDED
     Route: 048

REACTIONS (1)
  - Drug effect incomplete [Unknown]

NARRATIVE: CASE EVENT DATE: 2014
